FAERS Safety Report 7380173-1 (Version None)
Quarter: 2011Q1

REPORT INFORMATION
  Report Type: 
  Country: None (occurrence: None)
  Receive Date: 20110329
  Receipt Date: 20101011
  Transmission Date: 20110831
  Serious: No
  Sender: FDA-Public Use
  Company Number: US-MYLANLABS-2010S1018673

PATIENT
  Sex: Female

DRUGS (3)
  1. ESTRADIOL [Suspect]
     Indication: HORMONE REPLACEMENT THERAPY
     Dosage: QW
     Route: 062
     Dates: start: 20100730, end: 20100731
  2. SYNTHROID [Concomitant]
     Indication: HYPOTHYROIDISM
     Route: 048
  3. DITROPAN [Concomitant]
     Route: 048

REACTIONS (2)
  - APPLICATION SITE PRURITUS [None]
  - APPLICATION SITE VESICLES [None]
